FAERS Safety Report 23597482 (Version 1)
Quarter: 2024Q1

REPORT INFORMATION
  Report Type: Spontaneous
  Country: AU (occurrence: AU)
  Receive Date: 20240305
  Receipt Date: 20240305
  Transmission Date: 20240410
  Serious: Yes (Hospitalization)
  Sender: FDA-Public Use
  Company Number: AU-TASMAN PHARMA, INC.-2024TSM00161

PATIENT
  Age: 36 Year
  Sex: Male

DRUGS (7)
  1. CLOZAPINE [Suspect]
     Active Substance: CLOZAPINE
     Dosage: 450 MG
     Dates: start: 20231012, end: 20231015
  2. CLOZAPINE [Suspect]
     Active Substance: CLOZAPINE
     Dosage: 400 MG
     Dates: start: 20240103, end: 20240114
  3. VERSACLOZ [Suspect]
     Active Substance: CLOZAPINE
     Dosage: 150 MG
     Dates: start: 20231016, end: 20231110
  4. VERSACLOZ [Suspect]
     Active Substance: CLOZAPINE
     Dosage: 400 MG
     Dates: start: 20231127, end: 20240102
  5. VERSACLOZ [Suspect]
     Active Substance: CLOZAPINE
     Dosage: 450 MG
     Dates: start: 20240115, end: 20240205
  6. VERSACLOZ [Suspect]
     Active Substance: CLOZAPINE
     Dosage: 50 MG
     Dates: start: 20240220
  7. CLOZAPINE [Suspect]
     Active Substance: CLOZAPINE
     Dosage: 150 MG
     Dates: start: 20231111, end: 20231126

REACTIONS (2)
  - Hospitalisation [Not Recovered/Not Resolved]
  - Therapy interrupted [Recovered/Resolved]

NARRATIVE: CASE EVENT DATE: 20240201
